FAERS Safety Report 5249853-8 (Version None)
Quarter: 2007Q1

REPORT INFORMATION
  Report Type: 
  Country: None (occurrence: None)
  Receive Date: 20070228
  Receipt Date: 20070222
  Transmission Date: 20070707
  Serious: Yes (Other)
  Sender: FDA-Public Use
  Company Number: IT-GLAXOSMITHKLINE-B0457857A

PATIENT
  Age: 57 Year
  Sex: Female

DRUGS (2)
  1. VALACYCLOVIR HCL [Suspect]
     Indication: HERPES ZOSTER
     Dosage: 3000MG PER DAY
     Route: 048
     Dates: start: 20061204, end: 20061210
  2. GABAPENTIN [Suspect]
     Indication: POST HERPETIC NEURALGIA
     Dosage: 900MG PER DAY
     Route: 048
     Dates: start: 20061212, end: 20070125

REACTIONS (3)
  - DYSPEPSIA [None]
  - HEPATIC FUNCTION ABNORMAL [None]
  - HEPATITIS CHOLESTATIC [None]
